FAERS Safety Report 4616966-0 (Version None)
Quarter: 2005Q2

REPORT INFORMATION
  Report Type: 
  Country: None (occurrence: None)
  Receive Date: 20050311
  Receipt Date: 20041115
  Transmission Date: 20051028
  Serious: No
  Sender: FDA-Public Use
  Company Number: 2004-BP-09958BP

PATIENT
  Age: 54 Year
  Sex: Female

DRUGS (7)
  1. SPIRIVA [Suspect]
     Indication: CHRONIC OBSTRUCTIVE PULMONARY DISEASE
     Dosage: 18 MCG (18 MCG), IH
     Route: 055
  2. SPIRIVA [Suspect]
  3. ALBUTEROL [Concomitant]
  4. THEO-DUR [Concomitant]
  5. PREDNISONE [Concomitant]
  6. PROTONIX [Concomitant]
  7. LASIX [Concomitant]

REACTIONS (2)
  - CHROMATURIA [None]
  - POLLAKIURIA [None]
